FAERS Safety Report 11911467 (Version 2)
Quarter: 2016Q1

REPORT INFORMATION
  Report Type: Spontaneous
  Country: US (occurrence: US)
  Receive Date: 20160112
  Receipt Date: 20160203
  Transmission Date: 20160526
  Serious: No
  Sender: FDA-Public Use
  Company Number: US-ROXANE LABORATORIES, INC.-2016-RO-00050RO

PATIENT
  Sex: Female
  Weight: 87.09 kg

DRUGS (7)
  1. TRAMADOL. [Concomitant]
     Active Substance: TRAMADOL
     Route: 065
  2. CODEINE SULFATE TABLET USP [Suspect]
     Active Substance: CODEINE SULFATE
     Indication: SPINAL FUSION SURGERY
  3. TORADOL [Concomitant]
     Active Substance: KETOROLAC TROMETHAMINE
     Route: 065
  4. CODEINE SULFATE TABLET USP [Suspect]
     Active Substance: CODEINE SULFATE
     Indication: SPINAL PAIN
     Route: 065
  5. CODEINE SULFATE TABLET USP [Suspect]
     Active Substance: CODEINE SULFATE
     Indication: FIBROMYALGIA
  6. IBUPROFEN. [Concomitant]
     Active Substance: IBUPROFEN
     Route: 065
  7. CODEINE SULFATE TABLET USP [Suspect]
     Active Substance: CODEINE SULFATE
     Indication: PAIN

REACTIONS (2)
  - Malaise [Unknown]
  - Loose tooth [Unknown]
